FAERS Safety Report 5083640-9 (Version None)
Quarter: 2006Q3

REPORT INFORMATION
  Report Type: 
  Country: None (occurrence: None)
  Receive Date: 20060816
  Receipt Date: 20060807
  Transmission Date: 20061208
  Serious: Yes (Hospitalization, Other)
  Sender: FDA-Public Use
  Company Number: 29554

PATIENT
  Age: 78 Year
  Sex: Male

DRUGS (1)
  1. LEUCOVORIN CALCIUM [Suspect]
     Indication: COLON CANCER
     Dosage: 400 MG/M2/Q2W/IV
     Route: 042
     Dates: start: 20060509, end: 20060509

REACTIONS (11)
  - ANOREXIA [None]
  - CHOLECYSTITIS [None]
  - CHOLELITHIASIS [None]
  - DIARRHOEA [None]
  - DYSPHAGIA [None]
  - GASTROINTESTINAL PAIN [None]
  - HYPOXIA [None]
  - LETHARGY [None]
  - LUNG INFILTRATION [None]
  - PNEUMONITIS [None]
  - PYREXIA [None]
